FAERS Safety Report 10213626 (Version 1)
Quarter: 2014Q2

REPORT INFORMATION
  Report Type: Spontaneous
  Country: US (occurrence: None)
  Receive Date: 20140530
  Receipt Date: 20140530
  Transmission Date: 20141212
  Serious: Yes (Hospitalization)
  Sender: FDA-Public Use
  Company Number: UTC-044429

PATIENT
  Age: 61 Year
  Sex: Male

DRUGS (7)
  1. REMODULIN [Suspect]
     Indication: COR PULMONALE CHRONIC
     Route: 042
     Dates: start: 20130830
  2. XANAX (ALPRAZOLAM) [Concomitant]
  3. LASIX (FUROSEMIDE) [Concomitant]
  4. METFORMIN (METFORMIN) [Concomitant]
  5. TRAMADOL (TRAMADOL) [Concomitant]
  6. COUMADIN (WARFARIN SODIUM) [Concomitant]
  7. OXYGEN (OXYGEN) [Concomitant]

REACTIONS (9)
  - Accidental overdose [None]
  - Dyspnoea [None]
  - Dyspnoea exertional [None]
  - Oedema peripheral [None]
  - Hypoxia [None]
  - Chronic obstructive pulmonary disease [None]
  - Type 2 diabetes mellitus [None]
  - Pulmonary hypertension [None]
  - Diarrhoea [None]
